FAERS Safety Report 7510365-X (Version None)
Quarter: 2011Q2

REPORT INFORMATION
  Report Type: 
  Country: None (occurrence: None)
  Receive Date: 20110527
  Receipt Date: 20110516
  Transmission Date: 20111010
  Serious: Yes (Other)
  Sender: FDA-Public Use
  Company Number: IT-WATSON-2011-06831

PATIENT
  Age: 45 Year
  Sex: Female

DRUGS (2)
  1. FENTANYL [Suspect]
     Indication: ANAESTHESIA
     Dosage: 3 UG/KG, UNK
  2. PROPOFOL [Suspect]
     Indication: ANAESTHESIA
     Dosage: 2.5 MG/KG, UNK

REACTIONS (3)
  - PUPILS UNEQUAL [None]
  - CONDITION AGGRAVATED [None]
  - PUPILLARY REFLEX IMPAIRED [None]
